FAERS Safety Report 8611467-7 (Version None)
Quarter: 2012Q3

REPORT INFORMATION
  Report Type: 
  Country: None (occurrence: None)
  Receive Date: 20120809
  Receipt Date: 20120726
  Transmission Date: 20120928
  Serious: Yes (Other)
  Sender: FDA-Public Use
  Company Number: AUR-APL-2012-03249

PATIENT
  Age: 49 Year
  Sex: Male
  Weight: 75 kg

DRUGS (4)
  1. VEMURAFENIB [Suspect]
     Indication: MALIGNANT MELANOMA
     Dosage: 1920 MG (960 MG, 2 IN 1 D), ORAL, 1440 MG (720 MG, 2 IN 1 D)
     Route: 048
     Dates: start: 20120528, end: 20120625
  2. FLUCONAZOLE [Suspect]
     Indication: ORAL CANDIDIASIS
     Dosage: (100 MG), ORAL (50 MG)
     Route: 048
     Dates: start: 20120622
  3. KEPPRA [Suspect]
     Indication: PRODUCT USED FOR UNKNOWN INDICATION
  4. OMEPRAZOLE [Concomitant]

REACTIONS (4)
  - WHITE BLOOD CELL COUNT INCREASED [None]
  - ALANINE AMINOTRANSFERASE INCREASED [None]
  - BLOOD ALKALINE PHOSPHATASE INCREASED [None]
  - NEUTROPENIA [None]
